FAERS Safety Report 21691097 (Version 2)
Quarter: 2022Q4

REPORT INFORMATION
  Report Type: Spontaneous
  Country: NL (occurrence: NL)
  Receive Date: 20221207
  Receipt Date: 20221220
  Transmission Date: 20230112
  Serious: Yes (Other)
  Sender: FDA-Public Use
  Company Number: None

PATIENT
  Sex: Male
  Weight: 75 kg

DRUGS (5)
  1. UPADACITINIB [Suspect]
     Active Substance: UPADACITINIB
     Indication: Eczema
     Dosage: 2DD 1 TABLET
     Route: 048
     Dates: start: 20211230, end: 20221128
  2. Hydroxyzine hydrochloride (Hydroxyzine hydrochloride) [Concomitant]
     Indication: Product used for unknown indication
     Dosage: 10 MG TABLET
  3. Triamcinolonacetonide (Triamcinolone acetonide) [Concomitant]
     Indication: Product used for unknown indication
     Dosage: ZALF, 1 MG/G (MILLIGRAM PER GRAM)
  4. BARICITINIB [Suspect]
     Active Substance: BARICITINIB
     Indication: Eczema
     Dosage: 1 TABLET PER DAG
     Route: 065
     Dates: start: 20210916, end: 20211223
  5. Dermovate (Clobetasol propionate) [Concomitant]
     Indication: Product used for unknown indication
     Dosage: ZALF, 0,5 MG/G (MILLIGRAM PER GRAM)?CLOBETASOL ZALF 0,5MG/G / DERMOVATE HYDROFOBE ZALF 0,05%

REACTIONS (1)
  - Cutaneous T-cell lymphoma [Not Recovered/Not Resolved]
